FAERS Safety Report 12934876 (Version 1)
Quarter: 2016Q4

REPORT INFORMATION
  Report Type: Report from Study
  Country: US (occurrence: US)
  Receive Date: 20161112
  Receipt Date: 20161112
  Transmission Date: 20170207
  Serious: Yes (Hospitalization, Disabling, Other)
  Sender: FDA-Public Use
  Company Number: US-REGENERON PHARMACEUTICALS, INC.-2016-23698

PATIENT

DRUGS (2)
  1. EYLEA [Suspect]
     Active Substance: AFLIBERCEPT
     Indication: MACULAR DEGENERATION
     Dosage: UNK, MONTHLY
     Route: 031
  2. EYLEA [Suspect]
     Active Substance: AFLIBERCEPT
     Dosage: UNK, EVERY 2 MONTHS
     Route: 031

REACTIONS (6)
  - Dysstasia [Not Recovered/Not Resolved]
  - Gait disturbance [Recovering/Resolving]
  - Pneumonia [Recovered/Resolved]
  - Drug dose omission [Unknown]
  - Thrombosis [Unknown]
  - Amnesia [Unknown]

NARRATIVE: CASE EVENT DATE: 2016
